FAERS Safety Report 21904979 (Version 1)
Quarter: 2023Q1

REPORT INFORMATION
  Report Type: Spontaneous
  Country: DE (occurrence: DE)
  Receive Date: 20230124
  Receipt Date: 20230124
  Transmission Date: 20230418
  Serious: Yes (Other)
  Sender: FDA-Public Use
  Company Number: DE-ITALFARMACO-2023-000018

PATIENT
  Sex: Female

DRUGS (1)
  1. IBANDRONIC ACID [Suspect]
     Active Substance: IBANDRONIC ACID
     Indication: Product used for unknown indication
     Route: 065

REACTIONS (25)
  - Gait disturbance [Unknown]
  - Neck pain [Unknown]
  - Hypoaesthesia [Unknown]
  - Bedridden [Unknown]
  - Muscle spasms [Unknown]
  - Motor dysfunction [Unknown]
  - Anal prolapse [Recovering/Resolving]
  - Cough [Unknown]
  - Pain in jaw [Unknown]
  - Pelvic discomfort [Unknown]
  - Hypoacusis [Unknown]
  - Muscle twitching [Unknown]
  - Flatulence [Unknown]
  - Dysphagia [Unknown]
  - Myositis [Unknown]
  - Sensitive skin [Unknown]
  - Pruritus [Unknown]
  - Swelling face [Unknown]
  - Back pain [Unknown]
  - Asthenia [Unknown]
  - Pain in extremity [Unknown]
  - Nausea [Unknown]
  - Pain [Unknown]
  - Headache [Unknown]
  - Dyspepsia [Unknown]
